FAERS Safety Report 5806190-8 (Version None)
Quarter: 2008Q3

REPORT INFORMATION
  Report Type: 
  Country: None (occurrence: None)
  Receive Date: 20080709
  Receipt Date: 20080709
  Transmission Date: 20090109
  Serious: No
  Sender: FDA-Public Use
  Company Number: None

PATIENT

DRUGS (1)
  1. EXELON [Suspect]

REACTIONS (11)
  - ABNORMAL DREAMS [None]
  - AGEUSIA [None]
  - ANOREXIA [None]
  - ANOSMIA [None]
  - ERYTHEMA [None]
  - HALLUCINATIONS, MIXED [None]
  - MUSCLE SPASMS [None]
  - NIGHTMARE [None]
  - PAIN [None]
  - SKIN EXFOLIATION [None]
  - SKIN LESION [None]
